FAERS Safety Report 23501841 (Version 1)
Quarter: 2024Q1

REPORT INFORMATION
  Report Type: Spontaneous
  Country: US (occurrence: US)
  Receive Date: 20240208
  Receipt Date: 20240208
  Transmission Date: 20240410
  Serious: No
  Sender: FDA-Public Use
  Company Number: US-ANIPHARMA-2023-US-037725

PATIENT
  Age: 57 Year
  Sex: Female

DRUGS (42)
  1. CORTICOTROPIN [Suspect]
     Active Substance: CORTICOTROPIN
     Indication: Rheumatoid arthritis
     Dosage: 1 ML SUBCUTANEOUS EVERY 3 DAYS
     Route: 058
  2. TYLENOL EXTRA STRENGTH [Concomitant]
     Active Substance: ACETAMINOPHEN
     Route: 065
  3. VITAMIN C [Concomitant]
     Active Substance: ASCORBIC ACID
     Route: 065
  4. VITAMINS [Concomitant]
     Active Substance: VITAMINS
     Route: 065
  5. FISH OIL + D3 [Concomitant]
     Route: 065
  6. SLEEP AID [Concomitant]
     Route: 065
  7. CYANOCOBALAMIN [Concomitant]
     Active Substance: CYANOCOBALAMIN
     Route: 065
  8. DOXYCYCLINE HYCLATE [Concomitant]
     Active Substance: DOXYCYCLINE HYCLATE
     Route: 065
  9. ESOMEPRAZOLE MAGNESIUM [Concomitant]
     Active Substance: ESOMEPRAZOLE\ESOMEPRAZOLE MAGNESIUM\ESOMEPRAZOLE MAGNESIUM DIHYDRATE
     Route: 065
  10. OFLOXACIN [Concomitant]
     Active Substance: OFLOXACIN
     Route: 065
  11. ONDANSETRON [Concomitant]
     Active Substance: ONDANSETRON
     Route: 065
  12. KLONOPIN [Concomitant]
     Active Substance: CLONAZEPAM
     Route: 065
  13. PREDNISOLONE ACETATE [Concomitant]
     Active Substance: PREDNISOLONE ACETATE
     Route: 065
  14. PREDNISONE [Concomitant]
     Active Substance: PREDNISONE
     Dosage: 10 MG EVERY 3 DAYS FOR 2 WEEKS (WEANING OFF)
     Route: 065
  15. ROSUVASTATIN CALCIUM [Concomitant]
     Active Substance: ROSUVASTATIN CALCIUM
     Route: 065
  16. PROLIA [Concomitant]
     Active Substance: DENOSUMAB
     Route: 065
  17. VITAMIN B-6 TR [Concomitant]
     Route: 065
  18. CRANBERRY [Concomitant]
     Active Substance: CRANBERRY
     Route: 065
  19. COLLAGEN [Concomitant]
     Active Substance: COLLAGEN
     Route: 065
  20. MILK THISTLE EXTRACT ADVANCED [Concomitant]
     Route: 065
  21. D 3-5 [Concomitant]
     Route: 065
  22. OMEGA-3 ACIDS [Concomitant]
     Active Substance: OMEGA-3 FATTY ACIDS
     Route: 065
  23. LEVOTHYROXINE SODIUM [Concomitant]
     Active Substance: LEVOTHYROXINE SODIUM
     Route: 065
  24. MURO 128 [Concomitant]
     Active Substance: SODIUM CHLORIDE
     Route: 065
  25. ACETAMINOPHEN\HYDROCODONE [Concomitant]
     Active Substance: ACETAMINOPHEN\HYDROCODONE
     Route: 065
  26. YDROXYCHLOROQUINE SULFATE [Concomitant]
     Route: 065
  27. REFRESH OPTIVE ADVANCED [Concomitant]
     Active Substance: CARBOXYMETHYLCELLULOSE SODIUM\GLYCERIN\POLYSORBATE 80
     Route: 065
  28. REMICADE [Concomitant]
     Active Substance: INFLIXIMAB
     Route: 065
  29. FOLIC ACID [Concomitant]
     Active Substance: FOLIC ACID
     Route: 065
  30. HYDROCHLOROTHIAZIDE [Concomitant]
     Active Substance: HYDROCHLOROTHIAZIDE
     Route: 065
  31. MELATONIN [Concomitant]
     Active Substance: MELATONIN
     Route: 065
  32. METHOTREXATE SODIUM [Concomitant]
     Active Substance: METHOTREXATE SODIUM
     Route: 065
  33. ESTRADIOL [Concomitant]
     Active Substance: ESTRADIOL
     Route: 065
  34. LOTEMAX [Concomitant]
     Active Substance: LOTEPREDNOL ETABONATE
     Route: 065
  35. PROBIOTICS NOS [Concomitant]
     Active Substance: PROBIOTICS NOS
     Route: 065
  36. VITAMINS [Concomitant]
     Active Substance: VITAMINS
     Route: 065
  37. HYDROXYCHLOROQUINE SULFATE [Concomitant]
     Active Substance: HYDROXYCHLOROQUINE SULFATE
     Route: 065
  38. MAGNESIUM OXIDE [Concomitant]
     Active Substance: MAGNESIUM OXIDE
     Route: 065
  39. ACYCLOVIR [Concomitant]
     Active Substance: ACYCLOVIR
     Route: 065
  40. AMLODIPINE BESYLATE [Concomitant]
     Active Substance: AMLODIPINE BESYLATE
     Route: 065
  41. CALCIUM CITRATE [Concomitant]
     Active Substance: CALCIUM CITRATE
     Route: 065
  42. TIMOLOL MALEATE [Concomitant]
     Active Substance: TIMOLOL MALEATE
     Route: 065

REACTIONS (3)
  - Nausea [Recovering/Resolving]
  - Muscle spasms [Unknown]
  - Contraindicated product administered [Not Recovered/Not Resolved]
